FAERS Safety Report 9304917 (Version 1)
Quarter: 2013Q2

REPORT INFORMATION
  Report Type: Spontaneous
  Country: US (occurrence: None)
  Receive Date: 20130521
  Receipt Date: 20130521
  Transmission Date: 20140414
  Serious: Yes (Hospitalization)
  Sender: FDA-Public Use
  Company Number: CPS-2013-0010

PATIENT
  Age: 59 Year
  Sex: Female

DRUGS (3)
  1. LIOTHYRONINE SODIUM [Suspect]
     Indication: HYPOTHYROIDISM
     Route: 048
     Dates: start: 2012, end: 20130504
  2. SYNTHROID (LEVOTHYROXINE SODIUM) [Concomitant]
  3. METFORMIN (METFORMIN) [Concomitant]

REACTIONS (5)
  - Chest pain [None]
  - Dyspnoea [None]
  - Palpitations [None]
  - Hyperhidrosis [None]
  - Tri-iodothyronine increased [None]
